FAERS Safety Report 22943184 (Version 2)
Quarter: 2025Q1

REPORT INFORMATION
  Report Type: Report from Study
  Country: CA (occurrence: CA)
  Receive Date: 20230914
  Receipt Date: 20250331
  Transmission Date: 20250408
  Serious: Yes (Life-Threatening, Other)
  Sender: TAKEDA
  Company Number: CA-TAKEDA-2023TUS089252

PATIENT
  Age: 75 Year
  Sex: Male

DRUGS (16)
  1. VEDOLIZUMAB [Suspect]
     Active Substance: VEDOLIZUMAB
     Indication: Colitis ulcerative
  2. VEDOLIZUMAB [Suspect]
     Active Substance: VEDOLIZUMAB
     Dosage: 300 MILLIGRAM, Q4WEEKS
     Dates: start: 20190206
  3. VEDOLIZUMAB [Suspect]
     Active Substance: VEDOLIZUMAB
     Dosage: 300 MILLIGRAM, Q4WEEKS
  4. Salofalk [Concomitant]
  5. CORTIFOAM [Concomitant]
     Active Substance: HYDROCORTISONE ACETATE
  6. MAVIK [Concomitant]
     Active Substance: TRANDOLAPRIL
     Indication: Blood pressure increased
  7. RABEPRAZOLE [Concomitant]
     Active Substance: RABEPRAZOLE
     Indication: Oesophageal disorder
  8. MACROBID [Concomitant]
     Active Substance: NITROFURANTOIN\NITROFURANTOIN MONOHYDRATE
     Indication: Blood urine present
  9. ALLOPURINOL [Concomitant]
     Active Substance: ALLOPURINOL
  10. COLCHICINE [Concomitant]
     Active Substance: COLCHICINE
  11. CITALOPRAM [Concomitant]
     Active Substance: CITALOPRAM
  12. VITAMIN D3 [Concomitant]
     Active Substance: CHOLECALCIFEROL
  13. VITAMIN B12 [Concomitant]
     Active Substance: CYANOCOBALAMIN
  14. BISOPROLOL [Concomitant]
     Active Substance: BISOPROLOL
  15. ALBUTEROL [Concomitant]
     Active Substance: ALBUTEROL
  16. BREZTRI [Concomitant]
     Active Substance: BUDESONIDE\FORMOTEROL\GLYCOPYRROLATE

REACTIONS (4)
  - Thrombosis [Recovering/Resolving]
  - Off label use [Unknown]
  - Gout [Recovering/Resolving]
  - Pain in extremity [Recovering/Resolving]

NARRATIVE: CASE EVENT DATE: 20190206
